FAERS Safety Report 4978854-X (Version None)
Quarter: 2006Q2

REPORT INFORMATION
  Report Type: 
  Country: None (occurrence: None)
  Receive Date: 20060417
  Receipt Date: 20060407
  Transmission Date: 20061013
  Serious: Yes (Death)
  Sender: FDA-Public Use
  Company Number: 211352

PATIENT
  Age: 63 Year
  Sex: Male

DRUGS (11)
  1. RITUXAN [Suspect]
     Indication: LYMPHOMA
     Dosage: 570 MG, INTRAVENOUS
     Route: 042
     Dates: start: 20031017, end: 20040109
  2. METHOTREXATE [Suspect]
     Indication: DIFFUSE LARGE B-CELL LYMPHOMA
     Dosage: 4860 MG, INTRAVENOUS
     Route: 042
     Dates: start: 20030919, end: 20040113
  3. BLEOMYCIN [Suspect]
     Indication: DIFFUSE LARGE B-CELL LYMPHOMA
     Dosage: 6.5 MG, INTRAVENOUS
     Route: 042
     Dates: start: 20030714, end: 20031212
  4. DOXORUBICIN HYDROCHLORIDE [Suspect]
     Indication: DIFFUSE LARGE B-CELL LYMPHOMA
     Dosage: 73 MG, INTRAVENOUS
     Route: 042
     Dates: start: 20030714, end: 20031212
  5. CYCLOPHOSPHAMIDE [Suspect]
     Indication: DIFFUSE LARGE B-CELL LYMPHOMA
     Dosage: 1000 MG, INTRAVENOUS
     Route: 042
     Dates: start: 20030714, end: 20031212
  6. VINCRISTINE [Suspect]
     Indication: DIFFUSE LARGE B-CELL LYMPHOMA
     Dosage: 1.6 MG, INTRAVENOUS
     Route: 042
     Dates: start: 20030707, end: 20041212
  7. DEXAMETHASONE SODIUM PHOSPHATE [Suspect]
     Indication: DIFFUSE LARGE B-CELL LYMPHOMA
     Dosage: 10 MG, INTRAVENOUS
     Route: 042
     Dates: start: 20030714, end: 20031212
  8. HUMAN SERUM ALBUMIN (ALBUMIN HUMAN) [Suspect]
     Indication: HYPOALBUMINAEMIA
     Dosage: 12.5 MG, INTRAVENOUS
     Route: 042
     Dates: start: 20030614, end: 20030725
  9. POLYETHYLENE GLYCOL (POLYETHYLENE GLYCOL) [Suspect]
     Indication: SEPSIS
     Dosage: 5 MG, INTRAVENOUS
     Route: 042
     Dates: start: 20030723, end: 20030725
  10. LOXONIN (LOXOPROFEN SODIUM) [Concomitant]
  11. POLARAMINE [Concomitant]

REACTIONS (6)
  - BLOOD PRESSURE DECREASED [None]
  - COMA HEPATIC [None]
  - HEPATITIS B [None]
  - HEPATITIS FULMINANT [None]
  - PLATELET COUNT DECREASED [None]
  - PNEUMONIA [None]
